FAERS Safety Report 21230302 (Version 1)
Quarter: 2022Q3

REPORT INFORMATION
  Report Type: Spontaneous
  Country: AU (occurrence: AU)
  Receive Date: 20220818
  Receipt Date: 20220818
  Transmission Date: 20221026
  Serious: Yes (Death, Hospitalization, Other)
  Sender: FDA-Public Use
  Company Number: AU-SA-SAC20220302000583

PATIENT

DRUGS (1)
  1. LIBTAYO [Suspect]
     Active Substance: CEMIPLIMAB-RWLC
     Indication: Immunochemotherapy
     Dosage: 350 MG
     Route: 042
     Dates: start: 20211111, end: 20211203

REACTIONS (5)
  - End stage renal disease [Fatal]
  - Pain [Fatal]
  - Nausea [Fatal]
  - Agitation [Fatal]
  - Transplant failure [Unknown]
